FAERS Safety Report 6510078-7 (Version None)
Quarter: 2009Q4

REPORT INFORMATION
  Report Type: 
  Country: None (occurrence: None)
  Receive Date: 20091222
  Receipt Date: 20091208
  Transmission Date: 20100525
  Serious: Yes (Hospitalization)
  Sender: FDA-Public Use
  Company Number: DE-SANOFI-AVENTIS-200912595DE

PATIENT
  Age: 67 Year
  Sex: Female
  Weight: 51 kg

DRUGS (5)
  1. DOCETAXEL [Suspect]
     Dosage: DOSE AS USED: NOT REPORTED
     Route: 042
     Dates: start: 20090807, end: 20090807
  2. CISPLATIN [Suspect]
     Dosage: DOSE AS USED: NOT REPORTED
     Route: 048
     Dates: start: 20090807, end: 20090807
  3. CAPECITABINE [Suspect]
     Dosage: DOSE AS USED: NOT REPORTED
     Route: 042
     Dates: start: 20090807, end: 20090807
  4. FORTECORTIN [Concomitant]
     Indication: DRUG USE FOR UNKNOWN INDICATION
     Dates: start: 20090807
  5. PANTOZOL [Concomitant]
     Indication: DRUG USE FOR UNKNOWN INDICATION
     Dates: start: 20090807

REACTIONS (1)
  - SOPOR [None]
